FAERS Safety Report 8490657-0 (Version None)
Quarter: 2012Q3

REPORT INFORMATION
  Report Type: 
  Country: None (occurrence: None)
  Receive Date: 20120705
  Receipt Date: 20120627
  Transmission Date: 20120928
  Serious: Yes (Disabling)
  Sender: FDA-Public Use
  Company Number: US-CELGENEUS-163-21880-12041885

PATIENT
  Sex: Male
  Weight: 65.83 kg

DRUGS (6)
  1. ASPIRIN [Concomitant]
     Indication: THROMBOSIS PROPHYLAXIS
     Dosage: 325 MILLIGRAM
     Route: 048
  2. BACTRIM DS [Concomitant]
     Dosage: 1 TABLET
     Route: 048
     Dates: start: 20120321, end: 20120421
  3. RITUXAN [Concomitant]
     Route: 065
     Dates: start: 20120101, end: 20120101
  4. REVLIMID [Suspect]
     Dosage: 5 MILLIGRAM
     Route: 048
     Dates: start: 20120508
  5. REVLIMID [Suspect]
     Dosage: 5 MILLIGRAM
     Route: 048
     Dates: start: 20120326, end: 20120412
  6. DIFLUCAN [Concomitant]
     Indication: PROPHYLAXIS
     Dosage: 100 MILLIGRAM
     Route: 065
     Dates: start: 20120321, end: 20120421

REACTIONS (2)
  - LYMPHOEDEMA [None]
  - NON-HODGKIN'S LYMPHOMA [None]
